FAERS Safety Report 9518050 (Version 3)
Quarter: 2013Q4

REPORT INFORMATION
  Report Type: Spontaneous
  Country: US (occurrence: US)
  Receive Date: 20130912
  Receipt Date: 20131112
  Transmission Date: 20140711
  Serious: No
  Sender: FDA-Public Use
  Company Number: US-PFIZER INC-2013262495

PATIENT
  Sex: Female

DRUGS (2)
  1. LYRICA [Suspect]
     Dosage: UNK
     Dates: start: 20130910
  2. PRISTIQ [Suspect]
     Dosage: UNK
     Dates: start: 20130910

REACTIONS (2)
  - Fibromyalgia [Unknown]
  - Emotional distress [Unknown]
